FAERS Safety Report 15083182 (Version 1)
Quarter: 2018Q3

REPORT INFORMATION
  Report Type: Spontaneous
  Country: US (occurrence: US)
  Receive Date: 20180628
  Receipt Date: 20180628
  Transmission Date: 20181010
  Serious: No
  Sender: FDA-Public Use
  Company Number: US-INDIVIOR LIMITED-INDV-111277-2018

PATIENT
  Sex: Male

DRUGS (1)
  1. SUBLOCADE [Suspect]
     Active Substance: BUPRENORPHINE
     Indication: DRUG USE DISORDER
     Dosage: 100 MG, QMO
     Route: 058
     Dates: start: 20180525

REACTIONS (2)
  - Injection site haemorrhage [Recovered/Resolved]
  - Intentional product use issue [None]

NARRATIVE: CASE EVENT DATE: 20180525
